FAERS Safety Report 16456441 (Version 2)
Quarter: 2019Q2

REPORT INFORMATION
  Report Type: Spontaneous
  Country: CN (occurrence: CN)
  Receive Date: 20190620
  Receipt Date: 20190625
  Transmission Date: 20190711
  Serious: Yes (Hospitalization)
  Sender: FDA-Public Use
  Company Number: CN-ASTRAZENECA-2019SE88716

PATIENT
  Age: 42 Year
  Sex: Male

DRUGS (3)
  1. ANTIDIABETIC [Concomitant]
     Active Substance: UNSPECIFIED INGREDIENT
  2. ASPIRIN. [Concomitant]
     Active Substance: ASPIRIN
  3. BRILINTA [Suspect]
     Active Substance: TICAGRELOR
     Indication: ACUTE MYOCARDIAL INFARCTION
     Route: 048
     Dates: start: 20190430, end: 20190525

REACTIONS (4)
  - Discomfort [Not Recovered/Not Resolved]
  - Haemorrhage [Unknown]
  - Inflammation [Unknown]
  - Suffocation feeling [Not Recovered/Not Resolved]
